FAERS Safety Report 9693344 (Version 1)
Quarter: 2013Q4

REPORT INFORMATION
  Report Type: Spontaneous
  Country: BR (occurrence: BR)
  Receive Date: 20131118
  Receipt Date: 20131118
  Transmission Date: 20140711
  Serious: Yes (Other)
  Sender: FDA-Public Use
  Company Number: BR-PFIZER INC-2013323170

PATIENT
  Age: 72 Year
  Sex: Female
  Weight: 70 kg

DRUGS (2)
  1. LIPITOR [Suspect]
     Dosage: 10 MG, UNK
     Route: 048
     Dates: end: 2013
  2. LIPITOR [Suspect]
     Dosage: 20 MG, UNK
     Route: 048
     Dates: start: 201310, end: 201310

REACTIONS (8)
  - Hypotension [Unknown]
  - Blood pressure increased [Unknown]
  - Product quality issue [Unknown]
  - Chromaturia [Unknown]
  - Nausea [Unknown]
  - Feeling cold [Unknown]
  - Pyrexia [Unknown]
  - Decreased appetite [Unknown]
